FAERS Safety Report 10720496 (Version 2)
Quarter: 2015Q2

REPORT INFORMATION
  Report Type: Report from Study
  Country: US (occurrence: US)
  Receive Date: 20150119
  Receipt Date: 20150515
  Transmission Date: 20150821
  Serious: Yes (Life-Threatening, Hospitalization, Disabling, Other)
  Sender: FDA-Public Use
  Company Number: PHEH2014US023014

PATIENT
  Age: 57 Year
  Sex: Female
  Weight: 84 kg

DRUGS (8)
  1. VENLAFAXINE [Concomitant]
     Active Substance: VENLAFAXINE HYDROCHLORIDE
     Indication: DEPRESSION
     Dosage: 25 MG, QD
     Route: 048
  2. GILENYA [Suspect]
     Active Substance: FINGOLIMOD HYDROCHLORIDE
     Indication: MULTIPLE SCLEROSIS
     Dosage: 0.5 MG, QD
     Route: 048
     Dates: end: 20141013
  3. LIPITOR [Concomitant]
     Active Substance: ATORVASTATIN CALCIUM
     Indication: HYPERLIPIDAEMIA
     Dosage: 10 MG, QD
     Route: 048
  4. PHENOBARBITAL. [Concomitant]
     Active Substance: PHENOBARBITAL
     Indication: EPILEPSY
     Dosage: 120 MG, QHS
     Route: 048
  5. DOXEPIN [Concomitant]
     Active Substance: DOXEPIN
     Indication: INSOMNIA
     Dosage: 5 MG, QHS
     Route: 048
  6. GABAPENTIN. [Concomitant]
     Active Substance: GABAPENTIN
     Indication: PAIN
     Dosage: 600 MG, QID
     Route: 048
  7. METHADONE [Concomitant]
     Active Substance: METHADONE HYDROCHLORIDE
     Indication: PAIN
     Dosage: 20 MG, TID
     Route: 048
  8. BACLOFEN. [Concomitant]
     Active Substance: BACLOFEN
     Indication: MUSCLE SPASTICITY
     Dosage: 10 MG, TID
     Route: 048

REACTIONS (17)
  - Emphysema [Recovered/Resolved with Sequelae]
  - Pneumonia pseudomonal [Recovering/Resolving]
  - Crepitations [Unknown]
  - Stress [Unknown]
  - Pyrexia [Unknown]
  - Respiratory rate increased [Unknown]
  - Fatigue [Unknown]
  - Malaise [Unknown]
  - Bacteraemia [Unknown]
  - Nasopharyngitis [Unknown]
  - Pseudomonal sepsis [Recovering/Resolving]
  - Chest pain [Unknown]
  - Chest discomfort [Unknown]
  - Pleural effusion [Unknown]
  - Dyspnoea [Unknown]
  - Wheezing [Unknown]
  - Urinary retention [Recovering/Resolving]

NARRATIVE: CASE EVENT DATE: 20141013
